FAERS Safety Report 25284329 (Version 1)
Quarter: 2025Q2

REPORT INFORMATION
  Report Type: Spontaneous
  Country: ES (occurrence: ES)
  Receive Date: 20250508
  Receipt Date: 20250508
  Transmission Date: 20250717
  Serious: Yes (Hospitalization)
  Sender: MYLAN
  Company Number: None

PATIENT
  Age: 77 Year
  Sex: Female

DRUGS (2)
  1. SERTRALINE [Suspect]
     Active Substance: SERTRALINE HYDROCHLORIDE
     Indication: Anxiety
     Dosage: 50 MILLIGRAM, QD,1-0-0
     Dates: start: 20250228, end: 20250416
  2. HERBALS\MINERALS [Suspect]
     Active Substance: HERBALS\MINERALS
     Indication: Gastrooesophageal reflux disease
     Dosage: 15 MILLIGRAM, Q8H,1-1-1
     Dates: start: 20250201, end: 20250416

REACTIONS (1)
  - Hepatitis cholestatic [Recovering/Resolving]

NARRATIVE: CASE EVENT DATE: 20250326
